FAERS Safety Report 5219144-X (Version None)
Quarter: 2007Q1

REPORT INFORMATION
  Report Type: 
  Country: None (occurrence: None)
  Receive Date: 20070124
  Receipt Date: 20070124
  Transmission Date: 20070707
  Serious: Yes (Other)
  Sender: FDA-Public Use
  Company Number: None

PATIENT
  Age: 73 Year
  Sex: Male
  Weight: 80 kg

DRUGS (14)
  1. ALENDRONATE SODIUM [Suspect]
     Indication: OSTEOPOROSIS
     Dosage: 70 MG  ONE TIME DOSE
  2. ALBUTEROL [Concomitant]
  3. AMITRIPTYLINE HCL [Concomitant]
  4. AMMONIUM LACTATE [Concomitant]
  5. CAPSAICIN [Concomitant]
  6. CLOPIDOGREL [Concomitant]
  7. DESIPRAMINE HCL [Concomitant]
  8. FELODIPINE [Concomitant]
  9. FLUTICASONE/SALMETEROL [Concomitant]
  10. GUAIFENESIN-DM [Concomitant]
  11. IMIQUIMOD [Concomitant]
  12. TAMSULOSIN HCL [Concomitant]
  13. THEOPHYLLINE [Concomitant]
  14. TRAMADOL HCL [Concomitant]

REACTIONS (1)
  - PHARYNGEAL OEDEMA [None]
